FAERS Safety Report 4411415-X (Version None)
Quarter: 2004Q2

REPORT INFORMATION
  Report Type: 
  Country: None (occurrence: None)
  Receive Date: 20040630
  Receipt Date: 20040301
  Transmission Date: 20050107
  Serious: No
  Sender: FDA-Public Use
  Company Number: 04P-163-0251558-00

PATIENT
  Age: 70 Year
  Sex: Female
  Weight: 62.1428 kg

DRUGS (14)
  1. HUMIRA [Suspect]
     Indication: RHEUMATOID ARTHRITIS
     Dosage: 40 MG, 1 IN 2 WK, SUBCUTANEOUS
     Route: 058
     Dates: start: 20031101, end: 20040101
  2. METHOTREXATE SODIUM [Concomitant]
  3. SULFASALAZINE [Concomitant]
  4. MSM [Concomitant]
  5. MULTI-VITAMINS [Concomitant]
  6. LOVASTATIN [Concomitant]
  7. FOLIC ACID [Concomitant]
  8. NIFEDICAL [Concomitant]
  9. POTASSIUM [Concomitant]
  10. DYAZIDE [Concomitant]
  11. GLUCOSAMINE [Concomitant]
  12. LEKOVIT CA [Concomitant]
  13. CONJUGATED ESTROGEN [Concomitant]
  14. AMITRIPTYLINE HCL [Concomitant]

REACTIONS (6)
  - DRUG EFFECT DECREASED [None]
  - HERPES ZOSTER [None]
  - IMPAIRED HEALING [None]
  - PRURITUS [None]
  - RASH [None]
  - SKIN ULCER [None]
